FAERS Safety Report 6478431-8 (Version None)
Quarter: 2009Q4

REPORT INFORMATION
  Report Type: 
  Country: None (occurrence: None)
  Receive Date: 20091207
  Receipt Date: 20090219
  Transmission Date: 20100525
  Serious: No
  Sender: FDA-Public Use
  Company Number: US-AMGEN-KDL331174

PATIENT
  Sex: Female
  Weight: 87.6 kg

DRUGS (2)
  1. ENBREL [Suspect]
     Indication: PSORIATIC ARTHROPATHY
     Route: 058
     Dates: start: 20051021, end: 20081001
  2. METHOTREXATE [Concomitant]
     Route: 048

REACTIONS (3)
  - EPISTAXIS [None]
  - PYREXIA [None]
  - UPPER RESPIRATORY TRACT INFECTION [None]
